FAERS Safety Report 5254502-9 (Version None)
Quarter: 2007Q1

REPORT INFORMATION
  Report Type: 
  Country: None (occurrence: None)
  Receive Date: 20070302
  Receipt Date: 20070219
  Transmission Date: 20070707
  Serious: No
  Sender: FDA-Public Use
  Company Number: GB-PFIZER INC-2007008709

PATIENT
  Sex: Female

DRUGS (1)
  1. DEPO-PROVERA [Suspect]
     Indication: CONTRACEPTION
     Route: 030

REACTIONS (1)
  - NO ADVERSE EFFECT [None]
